FAERS Safety Report 7884117-5 (Version None)
Quarter: 2011Q4

REPORT INFORMATION
  Report Type: 
  Country: None (occurrence: None)
  Receive Date: 20111102
  Receipt Date: 20111025
  Transmission Date: 20120403
  Serious: Yes (Other)
  Sender: FDA-Public Use
  Company Number: GB-GLAXOSMITHKLINE-B0757935A

PATIENT
  Sex: Female
  Weight: 107 kg

DRUGS (6)
  1. FOLIC ACID [Concomitant]
  2. ATORVASTATIN [Concomitant]
     Dosage: 40MG PER DAY
  3. METHOTREXATE [Concomitant]
  4. ORLISTAT [Suspect]
     Indication: OBESITY
     Dosage: 360MG PER DAY
     Route: 048
     Dates: start: 20110817, end: 20110831
  5. LERCANIDIPINE [Concomitant]
     Dosage: 20MG PER DAY
  6. DICLOFENAC [Concomitant]

REACTIONS (1)
  - LIVER FUNCTION TEST ABNORMAL [None]
